FAERS Safety Report 5136779-3 (Version None)
Quarter: 2006Q4

REPORT INFORMATION
  Report Type: 
  Country: None (occurrence: None)
  Receive Date: 20061023
  Receipt Date: 20061009
  Transmission Date: 20070319
  Serious: Yes (Disabling, Other)
  Sender: FDA-Public Use
  Company Number: GXKR2006US06318

PATIENT
  Age: 18 Month
  Sex: Female

DRUGS (5)
  1. CARBOPLATIN (NGX) (CARBOPLATIN) UNKNOWN [Suspect]
     Indication: RETINOBLASTOMA
     Dosage: 6 CYCLES, EVERY 3 WEEKS, INTRAVENOUS; SEE IMAGE
     Route: 042
  2. VINCRISTINE [Concomitant]
  3. ETOPOSIDE [Concomitant]
  4. LASER THERAPY (NO INGREDIENTS/SUBSTANCES) [Concomitant]
  5. RADIOTHERAPY (NO INGREDIENTS/SUBSTANCES) [Concomitant]

REACTIONS (10)
  - BLINDNESS [None]
  - DEMYELINATION [None]
  - EYE PAIN [None]
  - INJECTION SITE CALCIFICATION [None]
  - INJECTION SITE NECROSIS [None]
  - NECROSIS ISCHAEMIC [None]
  - NEOPLASM PROGRESSION [None]
  - OPTIC ATROPHY [None]
  - OPTIC NERVE DISORDER [None]
  - OPTIC NEURITIS [None]
